FAERS Safety Report 5737728-7 (Version None)
Quarter: 2008Q2

REPORT INFORMATION
  Report Type: 
  Country: None (occurrence: None)
  Receive Date: 20080514
  Receipt Date: 20080508
  Transmission Date: 20081010
  Serious: Yes (Other)
  Sender: FDA-Public Use
  Company Number: B0360646A

PATIENT
  Sex: Female

DRUGS (4)
  1. PAROXETINE HCL [Suspect]
     Route: 065
     Dates: start: 20000912
  2. STELAZINE [Concomitant]
  3. LUSTRAL [Concomitant]
  4. STELAZINE [Concomitant]
     Dates: start: 20000101

REACTIONS (15)
  - AGGRESSION [None]
  - ANOREXIA [None]
  - ANXIETY [None]
  - COMMUNICATION DISORDER [None]
  - FATIGUE [None]
  - INSOMNIA [None]
  - LIBIDO DECREASED [None]
  - MOOD SWINGS [None]
  - MUSCLE SPASMS [None]
  - NIGHTMARE [None]
  - PARAESTHESIA [None]
  - STRESS [None]
  - TEARFULNESS [None]
  - THIRST [None]
  - WITHDRAWAL SYNDROME [None]
